FAERS Safety Report 4436039-X (Version None)
Quarter: 2004Q3

REPORT INFORMATION
  Report Type: 
  Country: None (occurrence: None)
  Receive Date: 20040726
  Receipt Date: 20040511
  Transmission Date: 20050211
  Serious: No
  Sender: FDA-Public Use
  Company Number: USA040465190

PATIENT
  Age: 80 Year
  Sex: Female
  Weight: 45 kg

DRUGS (8)
  1. FORTEO [Suspect]
     Indication: OSTEOPOROSIS
     Dosage: 20 UG/1 DAY
     Dates: start: 20040413
  2. CALTRATE 600 PLUS VITAMIN D [Concomitant]
  3. TOPROL-XL [Concomitant]
  4. MULTI-VITAMIN [Concomitant]
  5. ASPIRIN [Concomitant]
  6. FUROSEMIDE [Concomitant]
  7. SPIRNOLACTONE [Concomitant]
  8. WARFARIN SODIUM [Concomitant]

REACTIONS (3)
  - FEELING ABNORMAL [None]
  - FEELING HOT [None]
  - HYPERHIDROSIS [None]
